FAERS Safety Report 24820788 (Version 1)
Quarter: 2025Q1

REPORT INFORMATION
  Report Type: Spontaneous
  Country: US (occurrence: US)
  Receive Date: 20250108
  Receipt Date: 20250108
  Transmission Date: 20250409
  Serious: Yes (Other)
  Sender: BEIGENE
  Company Number: US-ABBVIE-5863058

PATIENT

DRUGS (2)
  1. BRUKINSA [Suspect]
     Active Substance: ZANUBRUTINIB
     Indication: Chronic lymphocytic leukaemia
  2. IMBRUVICA [Suspect]
     Active Substance: IBRUTINIB
     Indication: Product used for unknown indication

REACTIONS (9)
  - Acute leukaemia [Unknown]
  - Rash papular [Unknown]
  - Epistaxis [Unknown]
  - Illness [Unknown]
  - Rash [Unknown]
  - Nasal ulcer [Unknown]
  - White blood cell disorder [Unknown]
  - Skin ulcer [Unknown]
  - Drug ineffective [Unknown]
